FAERS Safety Report 16684539 (Version 3)
Quarter: 2019Q3

REPORT INFORMATION
  Report Type: Spontaneous
  Country: US (occurrence: US)
  Receive Date: 20190808
  Receipt Date: 20190927
  Transmission Date: 20191004
  Serious: Yes (Hospitalization, Other)
  Sender: FDA-Public Use
  Company Number: US-TEVA-2019-US-1088091

PATIENT
  Sex: Female

DRUGS (18)
  1. EMBEDA [Concomitant]
     Active Substance: MORPHINE SULFATE\NALTREXONE HYDROCHLORIDE
  2. WELLBUTRIN [Concomitant]
     Active Substance: BUPROPION HYDROCHLORIDE
  3. ALBUTEROL. [Concomitant]
     Active Substance: ALBUTEROL
  4. ALLOPURINOL. [Concomitant]
     Active Substance: ALLOPURINOL
  5. SYNRIBO [Suspect]
     Active Substance: OMACETAXINE MEPESUCCINATE
     Dosage: DOSAGE: 2.3 MG/0.66 ML BID FOR 7 DAYS
     Route: 065
     Dates: start: 20190920
  6. ELIQUIS [Concomitant]
     Active Substance: APIXABAN
  7. ACETAMINOPHEN. [Concomitant]
     Active Substance: ACETAMINOPHEN
  8. AMITRIPTYLIN [Concomitant]
     Active Substance: AMITRIPTYLINE
  9. IMITREX [Concomitant]
     Active Substance: SUMATRIPTAN SUCCINATE
  10. XANAX [Concomitant]
     Active Substance: ALPRAZOLAM
  11. CYMBALTA [Concomitant]
     Active Substance: DULOXETINE HYDROCHLORIDE
  12. ASPIRIN. [Concomitant]
     Active Substance: ASPIRIN
  13. CELEBREX [Concomitant]
     Active Substance: CELECOXIB
  14. LASIX [Concomitant]
     Active Substance: FUROSEMIDE
  15. AMITIZA [Concomitant]
     Active Substance: LUBIPROSTONE
  16. SYNRIBO [Suspect]
     Active Substance: OMACETAXINE MEPESUCCINATE
     Indication: CHRONIC MYELOID LEUKAEMIA
     Dosage: DOSAGE: 2.3 MG/0.66 ML BID FOR 14 DAYS
     Route: 065
     Dates: start: 20190703
  17. LUNESTA [Concomitant]
     Active Substance: ESZOPICLONE
  18. NEURONTIN [Concomitant]
     Active Substance: GABAPENTIN

REACTIONS (4)
  - Staphylococcal infection [Unknown]
  - Abscess jaw [Unknown]
  - Neutropenic infection [Unknown]
  - Clostridium difficile infection [Unknown]
